FAERS Safety Report 7645048-9 (Version None)
Quarter: 2011Q3

REPORT INFORMATION
  Report Type: 
  Country: None (occurrence: None)
  Receive Date: 20110729
  Receipt Date: 20110728
  Transmission Date: 20111222
  Serious: Yes (Hospitalization)
  Sender: FDA-Public Use
  Company Number: FR-GLAXOSMITHKLINE-B0735495A

PATIENT
  Age: 77 Year
  Sex: Male

DRUGS (5)
  1. TRAZODONE HCL [Suspect]
     Dosage: 100MG PER DAY
     Route: 048
     Dates: start: 20110303, end: 20110306
  2. PAROXETINE HCL [Suspect]
     Indication: PRODUCT USED FOR UNKNOWN INDICATION
     Dosage: 20MG UNKNOWN
     Route: 048
     Dates: start: 20110118
  3. BISOPROLOL FUMARATE [Suspect]
     Dosage: 1.25MG UNKNOWN
     Route: 048
     Dates: start: 20110301, end: 20110307
  4. CINACALCET HYDROCHLORIDE [Suspect]
     Dosage: 30MG UNKNOWN
     Route: 048
     Dates: start: 20110118
  5. PERINDOPRIL ERBUMINE [Suspect]
     Dosage: 5MG UNKNOWN
     Route: 048
     Dates: start: 20110118

REACTIONS (7)
  - BLOOD ALKALINE PHOSPHATASE INCREASED [None]
  - LIVER DISORDER [None]
  - TRANSAMINASES INCREASED [None]
  - GENERAL PHYSICAL HEALTH DETERIORATION [None]
  - BLOOD LACTATE DEHYDROGENASE [None]
  - RENAL FAILURE [None]
  - ABDOMINAL PAIN UPPER [None]
